FAERS Safety Report 15270322 (Version 1)
Quarter: 2018Q3

REPORT INFORMATION
  Report Type: Spontaneous
  Country: US (occurrence: US)
  Receive Date: 20180813
  Receipt Date: 20180813
  Transmission Date: 20181010
  Serious: No
  Sender: FDA-Public Use
  Company Number: US-TEVA-2018-US-941352

PATIENT
  Sex: Male

DRUGS (1)
  1. TESTOSTERONE. [Suspect]
     Active Substance: TESTOSTERONE
     Dosage: FOR 5 YEARS
     Route: 065

REACTIONS (4)
  - Product quality issue [Unknown]
  - Pyrexia [Unknown]
  - Diarrhoea [Unknown]
  - Muscle spasms [Unknown]
